FAERS Safety Report 9624638 (Version 1)
Quarter: 2013Q4

REPORT INFORMATION
  Report Type: Report from Study
  Country: US (occurrence: US)
  Receive Date: 20131015
  Receipt Date: 20131015
  Transmission Date: 20140711
  Serious: Yes (Other)
  Sender: FDA-Public Use
  Company Number: US-UCBSA-099840

PATIENT
  Sex: Female

DRUGS (1)
  1. KEPPRA XR [Suspect]
     Indication: EPILEPSY
     Dosage: 2000MG/DAY

REACTIONS (2)
  - Ectopic pregnancy [Unknown]
  - Pregnancy [Recovered/Resolved]
